FAERS Safety Report 19363823 (Version 1)
Quarter: 2021Q2

REPORT INFORMATION
  Report Type: Spontaneous
  Country: CN (occurrence: CN)
  Receive Date: 20210602
  Receipt Date: 20210602
  Transmission Date: 20210717
  Serious: Yes (Other)
  Sender: FDA-Public Use
  Company Number: CN-BAXTER-2021BAX013413

PATIENT
  Age: 56 Year
  Sex: Female
  Weight: 57 kg

DRUGS (18)
  1. 5% GLUCOSE  INJECTION [Suspect]
     Active Substance: DEXTROSE
     Indication: MEDICATION DILUTION
     Dosage: OXALIPLATIN 200 MG + 5% GS 500 ML; DAY 1
     Route: 041
     Dates: start: 20210413, end: 20210413
  2. VINDESINE SULFATE [Suspect]
     Active Substance: VINDESINE SULFATE
     Indication: NON-HODGKIN^S LYMPHOMA
     Dosage: VINDESINE SULFATE 4 MG + NS 40 ML, DAY 2
     Route: 042
     Dates: start: 20210414, end: 20210414
  3. PHARMORUBICIN [Suspect]
     Active Substance: EPIRUBICIN
     Indication: NON-HODGKIN^S LYMPHOMA
     Dosage: PHARMORUBICIN 110 MG + NS 100 ML; DAY 2
     Route: 041
     Dates: start: 20210414, end: 20210414
  4. SODIUM CHLORIDE. [Suspect]
     Active Substance: SODIUM CHLORIDE
     Dosage: DOSE RE?INTRODUCED, VINDESINE SULFATE + NS
     Route: 042
  5. VINDESINE SULFATE [Suspect]
     Active Substance: VINDESINE SULFATE
     Dosage: DOSE RE?INTRODUCED, VINDESINE SULFATE + NS
     Route: 042
  6. ENDOXAN [Suspect]
     Active Substance: CYCLOPHOSPHAMIDE
     Indication: NON-HODGKIN^S LYMPHOMA
     Dosage: CYCLOPHOSPHAMIDE 1.2 G + NS 100 ML, DAY 2
     Route: 041
     Dates: start: 20210414, end: 20210414
  7. SODIUM CHLORIDE. [Suspect]
     Active Substance: SODIUM CHLORIDE
     Indication: MEDICATION DILUTION
     Dosage: CYCLOPHOSPHAMIDE 1.2 G + NS 100 ML, DAY 2
     Route: 041
     Dates: start: 20210414, end: 20210414
  8. ENDOXAN [Suspect]
     Active Substance: CYCLOPHOSPHAMIDE
     Dosage: DOSE RE?INTRODUCED, CYCLOPHOSPHAMIDE + NS
     Route: 041
  9. PHARMORUBICIN [Suspect]
     Active Substance: EPIRUBICIN
     Dosage: DOSE RE?INTRODUCED, PHARMORUBICIN + NS
     Route: 041
  10. RITUXIMAB. [Suspect]
     Active Substance: RITUXIMAB
     Indication: NON-HODGKIN^S LYMPHOMA
     Dosage: RITUXIMAB 90 ML + NS 450 ML; DAY 1, SELF?PREPARATION
     Route: 041
     Dates: start: 20210413, end: 20210413
  11. RITUXIMAB. [Suspect]
     Active Substance: RITUXIMAB
     Dosage: DOSE RE?INTRODUCED, RITUXIMAB + NS
     Route: 041
  12. SODIUM CHLORIDE. [Suspect]
     Active Substance: SODIUM CHLORIDE
     Dosage: RITUXIMAB 90 ML + NS 450 ML; DAY 1, SELF?PREPARATION
     Route: 041
     Dates: start: 20210413, end: 20210413
  13. SODIUM CHLORIDE. [Suspect]
     Active Substance: SODIUM CHLORIDE
     Dosage: DOSE RE?INTRODUCED, RITUXIMAB + NS
     Route: 041
  14. OXALIPLATIN. [Suspect]
     Active Substance: OXALIPLATIN
     Indication: NON-HODGKIN^S LYMPHOMA
     Dosage: OXALIPLATIN 200 MG + 5% GS 500 ML; DAY 1
     Route: 041
     Dates: start: 20210413, end: 20210413
  15. SODIUM CHLORIDE. [Suspect]
     Active Substance: SODIUM CHLORIDE
     Dosage: PHARMORUBICIN 110 MG + NS 100 ML; DAY 2
     Route: 041
     Dates: start: 20210414, end: 20210414
  16. SODIUM CHLORIDE. [Suspect]
     Active Substance: SODIUM CHLORIDE
     Dosage: DOSE RE?INTRODUCED, CYCLOPHOSPHAMIDE + NS
     Route: 041
  17. SODIUM CHLORIDE. [Suspect]
     Active Substance: SODIUM CHLORIDE
     Dosage: DOSE RE?INTRODUCED, PHARMORUBICIN + NS
     Route: 041
  18. SODIUM CHLORIDE. [Suspect]
     Active Substance: SODIUM CHLORIDE
     Dosage: VINDESINE SULFATE 4 MG + NS 40 ML, DAY 2
     Route: 042
     Dates: start: 20210414, end: 20210414

REACTIONS (2)
  - Thrombocytopenia [Recovering/Resolving]
  - Condition aggravated [Recovering/Resolving]

NARRATIVE: CASE EVENT DATE: 20210415
